FAERS Safety Report 22219525 (Version 1)
Quarter: 2023Q2

REPORT INFORMATION
  Report Type: Spontaneous
  Country: US (occurrence: None)
  Receive Date: 20230413
  Receipt Date: 20230413
  Transmission Date: 20230722
  Serious: Yes (Other)
  Sender: FDA-Public Use
  Company Number: None

PATIENT
  Age: 45 Year
  Sex: Female
  Weight: 52.16 kg

DRUGS (1)
  1. BRIMONIDINE TARTRATE/TIMOLOL MALEATE OPHTHALMIC SOLUTION [Suspect]
     Active Substance: BRIMONIDINE TARTRATE\TIMOLOL MALEATE
     Indication: Open angle glaucoma
     Dosage: FREQUENCY : TWICE A DAY;?
     Route: 047

REACTIONS (5)
  - Product substitution issue [None]
  - Eye pain [None]
  - Eye inflammation [None]
  - Therapy cessation [None]
  - Insurance issue [None]

NARRATIVE: CASE EVENT DATE: 20220720
